FAERS Safety Report 15299502 (Version 1)
Quarter: 2018Q3

REPORT INFORMATION
  Report Type: Report from Study
  Country: JP (occurrence: JP)
  Receive Date: 20180821
  Receipt Date: 20180821
  Transmission Date: 20181010
  Serious: Yes (Other)
  Sender: FDA-Public Use
  Company Number: JP-UCBSA-2018035649

PATIENT
  Age: 41 Year
  Sex: Female
  Weight: 62 kg

DRUGS (9)
  1. LACOSAMIDE. [Suspect]
     Active Substance: LACOSAMIDE
     Indication: PARTIAL SEIZURES WITH SECONDARY GENERALISATION
     Dosage: 50 MG, 2X/DAY (BID)
     Route: 048
     Dates: start: 20180306, end: 20180613
  2. GLYCYRON [Concomitant]
     Active Substance: AMMONIUM GLYCYRRHIZATE\GLYCINE\METHIONINE
     Indication: ALCOHOLIC LIVER DISEASE
     Route: 048
  3. ESTRANA [Suspect]
     Active Substance: ESTRADIOL
     Indication: OVARIAN FAILURE
     Dosage: 0.72 MG DAILY
     Route: 062
     Dates: end: 20180613
  4. E KEPPRA [Concomitant]
     Active Substance: LEVETIRACETAM
     Indication: PARTIAL SEIZURES WITH SECONDARY GENERALISATION
     Route: 048
     Dates: start: 20171017
  5. GASTER [Concomitant]
     Active Substance: FAMOTIDINE
     Indication: GASTROINTESTINAL DISORDER
     Route: 048
  6. OLMESARTAN MEDOXOMIL. [Concomitant]
     Active Substance: OLMESARTAN MEDOXOMIL
     Indication: HYPERTENSION
     Route: 048
  7. DOMPERIDONE [Concomitant]
     Active Substance: DOMPERIDONE
     Indication: GASTROINTESTINAL DISORDER
     Route: 048
  8. MAGMITT [Concomitant]
     Active Substance: MAGNESIUM OXIDE
     Indication: CONSTIPATION
     Route: 048
  9. PLANOVAR [Suspect]
     Active Substance: ETHINYL ESTRADIOL\NORGESTREL
     Indication: OVARIAN FAILURE
     Dosage: 1 TABLET DAILY
     Route: 048
     Dates: start: 20170614

REACTIONS (1)
  - Gamma-glutamyltransferase abnormal [Unknown]

NARRATIVE: CASE EVENT DATE: 20180315
